FAERS Safety Report 6538564-4 (Version None)
Quarter: 2010Q1

REPORT INFORMATION
  Report Type: 
  Country: None (occurrence: None)
  Receive Date: 20100113
  Receipt Date: 20100113
  Transmission Date: 20100710
  Serious: Yes (Death)
  Sender: FDA-Public Use
  Company Number: None

PATIENT
  Age: 77 Year
  Sex: Female
  Weight: 72.5755 kg

DRUGS (1)
  1. PLAVIX [Suspect]
     Indication: DEVICE OCCLUSION
     Dosage: 1 PILL DAILY PO
     Route: 048
     Dates: start: 20080105, end: 20100108

REACTIONS (3)
  - GASTROINTESTINAL HAEMORRHAGE [None]
  - HAEMORRHAGE [None]
  - UNEVALUABLE EVENT [None]
